FAERS Safety Report 13359391 (Version 1)
Quarter: 2017Q1

REPORT INFORMATION
  Report Type: Spontaneous
  Country: US (occurrence: US)
  Receive Date: 20170321
  Receipt Date: 20170321
  Transmission Date: 20170429
  Serious: No
  Sender: FDA-Public Use
  Company Number: None

PATIENT
  Age: 88 Year
  Sex: Male
  Weight: 77.7 kg

DRUGS (1)
  1. APIXABAN [Suspect]
     Active Substance: APIXABAN
     Route: 048
     Dates: start: 20161103, end: 20170106

REACTIONS (3)
  - Rectal haemorrhage [None]
  - Lower gastrointestinal haemorrhage [None]
  - Diverticulitis [None]

NARRATIVE: CASE EVENT DATE: 20170106
